FAERS Safety Report 10146429 (Version 1)
Quarter: 2014Q2

REPORT INFORMATION
  Report Type: Spontaneous
  Country: US (occurrence: None)
  Receive Date: 20140430
  Receipt Date: 20140430
  Transmission Date: 20141212
  Serious: Yes (Disabling)
  Sender: FDA-Public Use
  Company Number: None

PATIENT
  Age: 36 Year
  Sex: Male

DRUGS (2)
  1. DULOXETINE [Suspect]
     Indication: ANXIETY
     Dosage: 1 CAPSULE, TWICE DAILY, TAKEN BY MOUTH
     Route: 048
     Dates: start: 20140419, end: 20140428
  2. DULOXETINE [Suspect]
     Indication: OBSESSIVE-COMPULSIVE DISORDER
     Dosage: 1 CAPSULE, TWICE DAILY, TAKEN BY MOUTH
     Route: 048
     Dates: start: 20140419, end: 20140428

REACTIONS (11)
  - Product substitution issue [None]
  - Influenza like illness [None]
  - Drug withdrawal syndrome [None]
  - Feeling jittery [None]
  - Fatigue [None]
  - Initial insomnia [None]
  - Headache [None]
  - Vision blurred [None]
  - Anxiety [None]
  - Obsessive-compulsive disorder [None]
  - Condition aggravated [None]
